FAERS Safety Report 11393833 (Version 2)
Quarter: 2015Q3

REPORT INFORMATION
  Report Type: Report from Study
  Country: US (occurrence: US)
  Receive Date: 20150819
  Receipt Date: 20150826
  Transmission Date: 20151125
  Serious: Yes (Death)
  Sender: FDA-Public Use
  Company Number: US-ROCHE-ITM201412IM007847

PATIENT
  Age: 71 Year
  Sex: Male
  Weight: 90.8 kg

DRUGS (5)
  1. ESBRIET [Suspect]
     Active Substance: PIRFENIDONE
     Dosage: 3 TABS 3X A DAY, STRENGTH: 267MG
     Route: 048
     Dates: start: 20150113
  2. ESBRIET [Suspect]
     Active Substance: PIRFENIDONE
     Dosage: 2 CAPSULES THRICE A DAY
     Route: 048
     Dates: start: 20150114
  3. ESBRIET [Suspect]
     Active Substance: PIRFENIDONE
     Dosage: 2 CAPSULES THRICE A DAY
     Route: 048
  4. ESBRIET [Suspect]
     Active Substance: PIRFENIDONE
     Indication: IDIOPATHIC PULMONARY FIBROSIS
     Route: 048
     Dates: start: 20141107
  5. ASPIRIN. [Concomitant]
     Active Substance: ASPIRIN

REACTIONS (4)
  - Medication error [Unknown]
  - Abdominal discomfort [Unknown]
  - Interstitial lung disease [Fatal]
  - Nausea [Unknown]

NARRATIVE: CASE EVENT DATE: 20141121
